FAERS Safety Report 6986394 (Version 4)
Quarter: 2013Q1

REPORT INFORMATION
  Report Type: Spontaneous
  Country: FR (occurrence: FR)
  Receive Date: 20090505
  Receipt Date: 20130314
  Transmission Date: 20140127
  Serious: Yes (Death, Other)
  Sender: FDA-Public Use
  Company Number: FR-PFIZER INC-2009206836

PATIENT
  Age: 21 Year
  Sex: Female

DRUGS (5)
  1. NEURONTIN [Suspect]
     Indication: DIABETIC NEUROPATHY
     Dosage: 800 MG, 2X/DAY
     Route: 048
  2. MICROVAL [Suspect]
     Indication: CONTRACEPTION
     Dosage: 0.03 MG, 1X/DAY
     Route: 048
     Dates: end: 20070219
  3. HUMALOG [Suspect]
     Indication: TYPE 1 DIABETES MELLITUS
     Dosage: UNK
  4. LANTUS [Suspect]
     Indication: TYPE 1 DIABETES MELLITUS
     Dosage: UNK
     Dates: end: 20070403
  5. UMULINE [Suspect]
     Indication: TYPE 1 DIABETES MELLITUS
     Dosage: UNK
     Dates: start: 20070403

REACTIONS (5)
  - Foetal death [Fatal]
  - Pyrexia [Unknown]
  - Placental disorder [Recovered/Resolved]
  - Drug administration error [Recovered/Resolved]
  - Unintended pregnancy [Recovered/Resolved]
